FAERS Safety Report 4905505-2 (Version None)
Quarter: 2006Q1

REPORT INFORMATION
  Report Type: 
  Country: None (occurrence: None)
  Receive Date: 20060203
  Receipt Date: 20060125
  Transmission Date: 20060701
  Serious: No
  Sender: FDA-Public Use
  Company Number: TPA2006A00013

PATIENT
  Age: 44 Year
  Sex: Female

DRUGS (6)
  1. ACTOS [Suspect]
     Indication: DIABETES MELLITUS
     Dosage: PER ORAL
     Route: 048
     Dates: end: 20030101
  2. CYMBALTA [Suspect]
     Dosage: 60 MG, 2 IN 1 D
     Dates: start: 20050101
  3. HUMALOG [Suspect]
     Indication: DIABETES MELLITUS
     Dates: end: 20051001
  4. SYNTHROID [Concomitant]
  5. TOPAMAX [Concomitant]
  6. LIPITOR [Concomitant]

REACTIONS (1)
  - HEPATITIS A [None]
